FAERS Safety Report 21001725 (Version 1)
Quarter: 2022Q2

REPORT INFORMATION
  Report Type: Spontaneous
  Country: LV (occurrence: LV)
  Receive Date: 20220624
  Receipt Date: 20220624
  Transmission Date: 20220720
  Serious: Yes (Other)
  Sender: FDA-Public Use
  Company Number: LV-BAYER-2022P000634

PATIENT
  Age: 56 Year
  Sex: Male
  Weight: 104 kg

DRUGS (3)
  1. XARELTO [Suspect]
     Active Substance: RIVAROXABAN
     Indication: Atrial fibrillation
     Dosage: UNK
     Route: 048
  2. METOPROLOL [Concomitant]
     Active Substance: METOPROLOL
     Dosage: 50 MG
  3. RAMIPRIL [Concomitant]
     Active Substance: RAMIPRIL
     Dosage: 5 MG

REACTIONS (4)
  - Coronary artery stenosis [Unknown]
  - Dyspnoea exertional [Recovered/Resolved]
  - Chest discomfort [Unknown]
  - Product use issue [Unknown]
